FAERS Safety Report 24802986 (Version 1)
Quarter: 2025Q1

REPORT INFORMATION
  Report Type: Report from Study
  Country: US (occurrence: US)
  Receive Date: 20250103
  Receipt Date: 20250103
  Transmission Date: 20250409
  Serious: No
  Sender: ACADIA PHARMACEUTICALS
  Company Number: US-ACADIA PHARMACEUTICALS INC.-ACA-2024-PIM-008955

PATIENT
  Age: 78 Year
  Sex: Male

DRUGS (11)
  1. NUPLAZID [Suspect]
     Active Substance: PIMAVANSERIN TARTRATE
     Indication: Parkinson^s disease
     Dosage: 34 MILLIGRAM, QD
     Route: 048
     Dates: start: 2024
  2. ELIQUIS [Concomitant]
     Active Substance: APIXABAN
  3. FLUDROCORTISONE ACETATE [Concomitant]
     Active Substance: FLUDROCORTISONE ACETATE
  4. HYDROCORTISONE [Concomitant]
     Active Substance: HYDROCORTISONE
  5. ROSUVASTATIN CALCIUM [Concomitant]
     Active Substance: ROSUVASTATIN CALCIUM
  6. QUETIAPINE FUMARATE [Concomitant]
     Active Substance: QUETIAPINE FUMARATE
  7. CARBIDOPA LEVODOPA [Concomitant]
     Active Substance: CARBIDOPA\LEVODOPA
  8. FAMOTIDINE [Concomitant]
     Active Substance: FAMOTIDINE
  9. OMEPRAZOLE [Concomitant]
     Active Substance: OMEPRAZOLE
  10. RIVASTIGMINE [Concomitant]
     Active Substance: RIVASTIGMINE
  11. MELATONIN [Concomitant]
     Active Substance: MELATONIN

REACTIONS (1)
  - Oral surgery [Unknown]

NARRATIVE: CASE EVENT DATE: 20241001
